FAERS Safety Report 21860665 (Version 2)
Quarter: 2023Q1

REPORT INFORMATION
  Report Type: Report from Study
  Country: IT (occurrence: IT)
  Receive Date: 20230113
  Receipt Date: 20230116
  Transmission Date: 20230418
  Serious: Yes (Death)
  Sender: FDA-Public Use
  Company Number: IT-002147023-NVSC2023IT007262

PATIENT
  Age: 72 Year
  Sex: Female
  Weight: 58 kg

DRUGS (4)
  1. TAFINLAR [Suspect]
     Active Substance: DABRAFENIB MESYLATE
     Indication: Papillary thyroid cancer
     Dosage: 75 MG, BID
     Route: 048
     Dates: start: 20221209
  2. TAFINLAR [Suspect]
     Active Substance: DABRAFENIB MESYLATE
     Indication: Neoplasm malignant
  3. TRAMETINIB [Suspect]
     Active Substance: TRAMETINIB
     Indication: Papillary thyroid cancer
     Dosage: 2 MG, QD
     Route: 048
     Dates: start: 20221209
  4. TRAMETINIB [Suspect]
     Active Substance: TRAMETINIB
     Indication: Neoplasm malignant

REACTIONS (1)
  - Cardiac arrest [Fatal]
